FAERS Safety Report 4658157-3 (Version None)
Quarter: 2005Q2

REPORT INFORMATION
  Report Type: 
  Country: None (occurrence: None)
  Receive Date: 20050509
  Receipt Date: 20050425
  Transmission Date: 20051028
  Serious: Yes (Other)
  Sender: FDA-Public Use
  Company Number: 2005061076

PATIENT
  Age: 85 Year
  Sex: Male
  Weight: 58.9676 kg

DRUGS (4)
  1. DETROL [Suspect]
     Indication: HYPERTONIC BLADDER
     Dosage: SEE IMAGE
  2. DETROL [Suspect]
     Indication: NOCTURIA
     Dosage: SEE IMAGE
  3. DETROL [Suspect]
     Indication: PAIN
     Dosage: SEE IMAGE
  4. CALCIUM CARBONATE (CALCIUM CARBONATE) [Concomitant]

REACTIONS (4)
  - ANAEMIA [None]
  - CALCULUS BLADDER [None]
  - DRUG EFFECT DECREASED [None]
  - DRY MOUTH [None]
